FAERS Safety Report 24089264 (Version 1)
Quarter: 2024Q3

REPORT INFORMATION
  Report Type: Report from Study
  Country: US (occurrence: None)
  Receive Date: 20240715
  Receipt Date: 20240715
  Transmission Date: 20241017
  Serious: Yes (Other)
  Sender: ASTRAZENECA
  Company Number: 2019SF03666

PATIENT
  Sex: Female
  Weight: 72.1 kg

DRUGS (5)
  1. NEXIUM [Suspect]
     Active Substance: ESOMEPRAZOLE MAGNESIUM
     Indication: Gastrooesophageal reflux disease
     Route: 048
  2. NEXIUM [Suspect]
     Active Substance: ESOMEPRAZOLE MAGNESIUM
     Indication: Gastrooesophageal reflux disease
     Dosage: NEXIUM OS
     Route: 048
  3. METOPROLOL SUCCINATE [Suspect]
     Active Substance: METOPROLOL SUCCINATE
     Indication: Hypertension
     Route: 048
  4. LEVOTHYROXINE [Concomitant]
     Active Substance: LEVOTHYROXINE\LEVOTHYROXINE SODIUM
  5. ASPIRIN [Concomitant]
     Active Substance: ASPIRIN

REACTIONS (13)
  - Oesophageal perforation [Unknown]
  - Choking [Recovered/Resolved]
  - Precancerous skin lesion [Recovered/Resolved]
  - Visual impairment [Unknown]
  - Multiple allergies [Unknown]
  - Osteoporosis [Unknown]
  - Back pain [Unknown]
  - Thyroid disorder [Unknown]
  - Hypertension [Unknown]
  - Eating disorder [Recovered/Resolved]
  - Hypoacusis [Unknown]
  - Dry eye [Unknown]
  - Blood pressure decreased [Unknown]
